FAERS Safety Report 8133810 (Version 17)
Quarter: 2013Q4

REPORT INFORMATION
  Report Type: Report from Study
  Country: DE (occurrence: DE)
  Receive Date: 20110913
  Receipt Date: 20131125
  Transmission Date: 20140711
  Serious: Yes (Hospitalization)
  Sender: FDA-Public Use
  Company Number: DE-BRISTOL-MYERS SQUIBB COMPANY-16046146

PATIENT
  Age: 53 Year
  Sex: Male
  Weight: 71.6 kg

DRUGS (16)
  1. IPILIMUMAB [Suspect]
     Indication: MALIGNANT MELANOMA
     Dosage: NUMBER OF CYCLES:4,LAST INF:22JUL11,RESTARTED:20MAY11-STOPED:22JUL11
     Route: 042
     Dates: start: 20110520, end: 20110722
  2. URBASON [Concomitant]
     Dosage: IV ROUTE:150MG:14S-15SEP,160MG:16-17SEP,128MG:18-19SEP,16MICROGRAM:16-17SEP?ORAL:32MG:1OCT-23OCT11
     Route: 048
     Dates: start: 20110914, end: 20111023
  3. CLEXANE [Concomitant]
  4. IBUHEXAL [Concomitant]
  5. RANITIC [Concomitant]
     Dates: start: 20110812, end: 20110913
  6. PREDNISOLONE [Concomitant]
     Indication: DIARRHOEA
     Dosage: 12AUG11-23AUG;24AUG-13SEP11,01OCT11-12OCT11(32MG).
     Route: 048
     Dates: start: 20110812, end: 20111023
  7. PANTOZOL [Concomitant]
     Route: 048
     Dates: start: 20110914
  8. PARACETAMOL [Concomitant]
     Route: 048
     Dates: start: 20110916
  9. VALACICLOVIR [Concomitant]
     Route: 048
     Dates: start: 20111001
  10. FLUCONAZOLE [Concomitant]
     Dosage: 300MG:16SEP2011-ONG
     Route: 048
     Dates: start: 20111001
  11. ZINACEF [Concomitant]
     Route: 042
     Dates: start: 20110916
  12. METHYLPREDNISONE [Concomitant]
     Route: 048
     Dates: start: 20111001, end: 20111023
  13. PERFALGAN [Concomitant]
     Dates: start: 20111023
  14. CLONT [Concomitant]
  15. SALOFALK [Concomitant]
     Dates: start: 20110914
  16. FORTECORTIN [Concomitant]
     Route: 048

REACTIONS (6)
  - Large intestine perforation [Not Recovered/Not Resolved]
  - Colitis [Not Recovered/Not Resolved]
  - Diarrhoea [Unknown]
  - Pain [Unknown]
  - Headache [Not Recovered/Not Resolved]
  - Venous thrombosis [Not Recovered/Not Resolved]
